FAERS Safety Report 8509154-9 (Version None)
Quarter: 2012Q3

REPORT INFORMATION
  Report Type: 
  Country: None (occurrence: None)
  Receive Date: 20120713
  Receipt Date: 20120706
  Transmission Date: 20120928
  Serious: Yes (Other)
  Sender: FDA-Public Use
  Company Number: JP-GLAXOSMITHKLINE-B0813773A

PATIENT
  Age: 47 Year
  Sex: Female
  Weight: 53 kg

DRUGS (13)
  1. MAGMITT [Concomitant]
     Route: 048
  2. VOLTAREN [Concomitant]
     Route: 048
  3. VOLTAREN [Concomitant]
     Route: 054
  4. CHINESE MEDICINE [Concomitant]
     Route: 048
  5. FAMOTIDINE [Concomitant]
     Route: 042
  6. VITAMIN B12 [Concomitant]
     Route: 048
  7. FERROUS CITRATE [Concomitant]
     Route: 048
  8. SENNOSIDE A + B CALCIUM [Concomitant]
     Route: 048
  9. ARIXTRA [Suspect]
     Indication: THROMBOSIS PROPHYLAXIS
     Dosage: 2.5MG PER DAY
     Route: 058
     Dates: start: 20120609, end: 20120611
  10. PLANJIN [Suspect]
     Indication: INFECTION
     Dosage: 2IUAX PER DAY
     Dates: start: 20120611
  11. FOLIAMIN [Concomitant]
     Route: 048
  12. AMOBAN [Concomitant]
     Route: 048
  13. FLUMARIN [Concomitant]
     Route: 042

REACTIONS (5)
  - ERYTHEMA [None]
  - HEPATIC FUNCTION ABNORMAL [None]
  - PYREXIA [None]
  - PRURITUS [None]
  - RASH [None]
